FAERS Safety Report 8584222 (Version 3)
Quarter: 2012Q4

REPORT INFORMATION
  Report Type: 
  Country: US (occurrence: US)
  Receive Date: 20120529
  Receipt Date: 20120926
  Transmission Date: 20130627
  Serious: Yes (Other)
  Sender: FDA-Public Use
  Company Number: US-ASTRAZENECA-2011SE53707

PATIENT
  Age: 61 Year
  Sex: Female
  Weight: 86.2 kg

DRUGS (18)
  1. ATACAND HCT [Suspect]
     Indication: BLOOD PRESSURE ABNORMAL
     Dosage: 32/ MG DAILY
     Route: 048
  2. NEXIUM [Suspect]
     Indication: GASTROOESOPHAGEAL REFLUX DISEASE
     Route: 048
  3. SEROQUEL [Suspect]
     Indication: ANXIETY
     Route: 048
     Dates: start: 201010
  4. SEROQUEL [Suspect]
     Indication: DEPRESSION
     Route: 048
     Dates: start: 201010
  5. SEROQUEL [Suspect]
     Indication: MAJOR DEPRESSION
     Route: 048
     Dates: start: 201010
  6. SEROQUEL [Suspect]
     Indication: ANXIETY
     Route: 048
     Dates: start: 20120508
  7. SEROQUEL [Suspect]
     Indication: DEPRESSION
     Route: 048
     Dates: start: 20120508
  8. SEROQUEL [Suspect]
     Indication: MAJOR DEPRESSION
     Route: 048
     Dates: start: 20120508
  9. SEROQUEL [Suspect]
     Indication: ANXIETY
     Route: 048
  10. SEROQUEL [Suspect]
     Indication: DEPRESSION
     Route: 048
  11. SEROQUEL [Suspect]
     Indication: MAJOR DEPRESSION
     Route: 048
  12. CLODIPINE [Concomitant]
     Indication: ANXIETY
     Route: 048
  13. ESTRACE [Concomitant]
     Indication: HORMONE REPLACEMENT THERAPY
     Route: 048
  14. SALINE SOLUTION FOR NOSE [Concomitant]
  15. CYMBALTA [Concomitant]
  16. KLONOPIN [Concomitant]
  17. MOUTHWASH OTC [Concomitant]
  18. MOUTHSPRAY [Concomitant]

REACTIONS (19)
  - Suicidal ideation [Unknown]
  - Nasopharyngitis [Unknown]
  - Nasal dryness [Unknown]
  - Nasal congestion [Unknown]
  - Intervertebral disc protrusion [Unknown]
  - Feeling of despair [Unknown]
  - Chapped lips [Unknown]
  - Tongue haemorrhage [Unknown]
  - Lip haemorrhage [Unknown]
  - Tongue disorder [Unknown]
  - Tongue disorder [Unknown]
  - Plicated tongue [Unknown]
  - Odynophagia [Unknown]
  - Irritable bowel syndrome [Unknown]
  - Depression [Unknown]
  - Stomatitis [Unknown]
  - Abdominal pain upper [Unknown]
  - Malaise [Unknown]
  - Dry mouth [Unknown]
